FAERS Safety Report 23616231 (Version 3)
Quarter: 2025Q2

REPORT INFORMATION
  Report Type: Spontaneous
  Country: GB (occurrence: GB)
  Receive Date: 20240311
  Receipt Date: 20250603
  Transmission Date: 20250717
  Serious: Yes (Hospitalization, Other)
  Sender: SANDOZ
  Company Number: None

PATIENT
  Age: 68 Year
  Sex: Female
  Weight: 92 kg

DRUGS (261)
  1. AMINOPHYLLINE [Suspect]
     Active Substance: AMINOPHYLLINE
     Indication: Product used for unknown indication
     Dosage: 400 MG, ONCE PER DAY
     Route: 065
     Dates: start: 20100917
  2. AMINOPHYLLINE [Suspect]
     Active Substance: AMINOPHYLLINE
     Dosage: 400 MG, ONCE PER DAY
     Route: 065
     Dates: start: 20200917
  3. AMINOPHYLLINE [Suspect]
     Active Substance: AMINOPHYLLINE
     Dosage: 400 MG, QD
     Route: 065
  4. AMOXICILLIN [Suspect]
     Active Substance: AMOXICILLIN
     Indication: Abdominal discomfort
     Route: 065
  5. AMOXICILLIN [Suspect]
     Active Substance: AMOXICILLIN
     Indication: Product used for unknown indication
     Route: 065
     Dates: start: 20210904
  6. AMOXICILLIN [Suspect]
     Active Substance: AMOXICILLIN
     Route: 065
     Dates: start: 20210904
  7. AMOXICILLIN [Suspect]
     Active Substance: AMOXICILLIN
     Route: 065
  8. BIFIDOBACTERIUM LONGUM [Suspect]
     Active Substance: BIFIDOBACTERIUM LONGUM
     Indication: Depression
     Route: 065
  9. BIFIDOBACTERIUM LONGUM [Suspect]
     Active Substance: BIFIDOBACTERIUM LONGUM
     Indication: Abdominal discomfort
     Route: 065
  10. BIFIDOBACTERIUM LONGUM [Suspect]
     Active Substance: BIFIDOBACTERIUM LONGUM
     Route: 065
  11. BIFIDOBACTERIUM LONGUM [Suspect]
     Active Substance: BIFIDOBACTERIUM LONGUM
     Route: 065
  12. BIFIDOBACTERIUM LONGUM [Suspect]
     Active Substance: BIFIDOBACTERIUM LONGUM
     Route: 065
  13. CIPROFLOXACIN [Suspect]
     Active Substance: CIPROFLOXACIN
     Indication: Abdominal discomfort
     Dosage: 1000 MG, ONCE PER DAY
     Route: 065
     Dates: start: 20200917
  14. CIPROFLOXACIN [Suspect]
     Active Substance: CIPROFLOXACIN
     Indication: Product used for unknown indication
     Dosage: 1000 MG, ONCE PER DAY
     Route: 065
     Dates: start: 20100917
  15. CIPROFLOXACIN [Suspect]
     Active Substance: CIPROFLOXACIN
     Indication: Rheumatoid arthritis
     Dosage: 1000 MG, ONCE PER DAY
     Route: 065
     Dates: start: 20100917
  16. CIPROFLOXACIN [Suspect]
     Active Substance: CIPROFLOXACIN
     Dosage: 1000 MG, ONCE PER DAY
     Route: 065
     Dates: start: 20100917
  17. CIPROFLOXACIN [Suspect]
     Active Substance: CIPROFLOXACIN
     Dosage: 1000 MG, ONCE PER DAY
     Route: 065
     Dates: start: 20100917
  18. CIPROFLOXACIN [Suspect]
     Active Substance: CIPROFLOXACIN
     Dosage: 1000 MG, ONCE PER DAY
     Route: 065
  19. CIPROFLOXACIN [Suspect]
     Active Substance: CIPROFLOXACIN
     Dosage: 1000 MG, QD
     Route: 065
     Dates: start: 20200917
  20. CIPROFLOXACIN [Suspect]
     Active Substance: CIPROFLOXACIN
     Dosage: 1000 MG, QD
     Route: 065
     Dates: start: 20200917
  21. CIPROFLOXACIN [Suspect]
     Active Substance: CIPROFLOXACIN
     Dosage: 1000 MG, QD
     Route: 065
     Dates: start: 20200917
  22. CIPROFLOXACIN [Suspect]
     Active Substance: CIPROFLOXACIN
     Dosage: 1000 MG, QD
     Route: 065
     Dates: start: 20200917
  23. CIPROFLOXACIN [Suspect]
     Active Substance: CIPROFLOXACIN
     Dosage: 1000 MG, DAILY
     Route: 065
     Dates: start: 20100917
  24. CIPROFLOXACIN [Suspect]
     Active Substance: CIPROFLOXACIN
     Route: 065
  25. CIPROFLOXACIN [Suspect]
     Active Substance: CIPROFLOXACIN
     Route: 065
  26. CIPROFLOXACIN [Suspect]
     Active Substance: CIPROFLOXACIN
     Route: 065
  27. CIPROFLOXACIN [Suspect]
     Active Substance: CIPROFLOXACIN
     Route: 065
  28. CIPROFLOXACIN [Suspect]
     Active Substance: CIPROFLOXACIN
     Route: 065
  29. CARBAMAZEPINE [Suspect]
     Active Substance: CARBAMAZEPINE
     Dosage: 1000 MG, QD
     Route: 065
     Dates: start: 20100917
  30. CARBAMAZEPINE [Suspect]
     Active Substance: CARBAMAZEPINE
     Indication: Depression
     Dosage: 750 MG, QD
     Route: 065
     Dates: start: 20100917
  31. CARBAMAZEPINE [Suspect]
     Active Substance: CARBAMAZEPINE
     Indication: Product used for unknown indication
     Dosage: 750 MG, QD
     Route: 065
     Dates: start: 20200917
  32. CARBAMAZEPINE [Suspect]
     Active Substance: CARBAMAZEPINE
     Dosage: 750 MG, QD
     Route: 065
     Dates: start: 20210917
  33. CARBAMAZEPINE [Suspect]
     Active Substance: CARBAMAZEPINE
     Dosage: 750 MG, QD
     Route: 065
  34. CARBAMAZEPINE [Suspect]
     Active Substance: CARBAMAZEPINE
     Route: 065
  35. CARBOCYSTEINE [Suspect]
     Active Substance: CARBOCYSTEINE
     Dosage: 750 MG, QD
     Route: 065
     Dates: start: 20120917
  36. CARBOCYSTEINE [Suspect]
     Active Substance: CARBOCYSTEINE
     Dosage: 750 MG, QD
     Route: 065
     Dates: start: 20200917
  37. CARBOCYSTEINE [Suspect]
     Active Substance: CARBOCYSTEINE
     Dosage: 750 MG, QD
     Route: 065
     Dates: start: 20210917
  38. CARBOCYSTEINE [Suspect]
     Active Substance: CARBOCYSTEINE
     Indication: Rheumatoid arthritis
     Dosage: 750 MG, QD (CAPSULE)
     Route: 065
     Dates: start: 20100917
  39. CARBOCYSTEINE [Suspect]
     Active Substance: CARBOCYSTEINE
     Indication: Rheumatoid arthritis
     Dosage: 750 MG, ONCE PER DAY
     Route: 065
     Dates: start: 20100917
  40. CARBOCYSTEINE [Suspect]
     Active Substance: CARBOCYSTEINE
     Dosage: 750 MG, ONCE PER DAY
     Route: 065
  41. CARBOCYSTEINE [Suspect]
     Active Substance: CARBOCYSTEINE
     Dosage: 750 MG, ONCE PER DAY
     Route: 065
  42. CARBOCYSTEINE [Suspect]
     Active Substance: CARBOCYSTEINE
     Dosage: 750 MG, ONCE PER DAY
     Route: 065
  43. CARBOCYSTEINE [Suspect]
     Active Substance: CARBOCYSTEINE
     Dosage: 750 MG, ONCE PER DAY
     Route: 065
  44. CARBOCYSTEINE [Suspect]
     Active Substance: CARBOCYSTEINE
     Indication: Product used for unknown indication
     Dosage: 750 MG, ONCE PER DAY (750 MG, QD)
     Route: 065
     Dates: start: 20200917
  45. CARBOCYSTEINE [Suspect]
     Active Substance: CARBOCYSTEINE
     Dosage: 750 MG, ONCE PER DAY (750 MG, QD)
     Route: 065
     Dates: start: 20120917
  46. CARBOCYSTEINE [Suspect]
     Active Substance: CARBOCYSTEINE
     Dosage: 750 MG, ONCE PER DAY (750 MG, QD)
     Route: 065
     Dates: start: 20210917
  47. CARBOCYSTEINE [Suspect]
     Active Substance: CARBOCYSTEINE
     Route: 065
  48. CARBOCYSTEINE [Suspect]
     Active Substance: CARBOCYSTEINE
     Route: 065
  49. CHARCOAL ACTIVATED [Suspect]
     Active Substance: ACTIVATED CHARCOAL
     Indication: Product used for unknown indication
     Dosage: 750 MG, QD
     Route: 065
  50. CHARCOAL ACTIVATED [Suspect]
     Active Substance: ACTIVATED CHARCOAL
     Route: 065
  51. CHARCOAL ACTIVATED [Suspect]
     Active Substance: ACTIVATED CHARCOAL
     Route: 065
  52. ENBREL [Suspect]
     Active Substance: ETANERCEPT
     Indication: Rheumatoid arthritis
     Dosage: 50 MG, PER WEEK (50 MG, QW, MYCLIC PEN)
     Route: 058
     Dates: start: 20100917
  53. ENBREL [Suspect]
     Active Substance: ETANERCEPT
     Dosage: 50 MG, PER WEEK,QW, MYCLIC PEN
     Route: 065
     Dates: start: 20210917
  54. ENBREL [Suspect]
     Active Substance: ETANERCEPT
     Route: 065
  55. ENBREL [Suspect]
     Active Substance: ETANERCEPT
     Route: 065
  56. GUANIDINE [Suspect]
     Active Substance: GUANIDINE
     Dosage: 750 MG, ONCE PER DAY (750 MG, QD(1,3-DIPHENYLGUANIDINE))
     Route: 065
  57. GUANIDINE [Suspect]
     Active Substance: GUANIDINE
     Dosage: 750 MG, ONCE PER DAY (750 MG, QD(1,3-DIPHENYLGUANIDINE))
     Route: 065
  58. GUANIDINE [Suspect]
     Active Substance: GUANIDINE
     Indication: Abdominal discomfort
     Dosage: 750 MG, QD (1,3-DIPHENYLGUANIDINE)
     Route: 065
  59. GUANIDINE [Suspect]
     Active Substance: GUANIDINE
     Indication: Product used for unknown indication
     Dosage: 750 MG, QD (1,3-DIPHENYLGUANIDINE)
     Route: 065
  60. GUANIDINE [Suspect]
     Active Substance: GUANIDINE
     Route: 065
  61. GUANIDINE [Suspect]
     Active Substance: GUANIDINE
     Route: 065
  62. GUANIDINE [Suspect]
     Active Substance: GUANIDINE
     Indication: Depression
     Dosage: UNK QD (1,3-DIPHENYLGUANIDINE)
     Route: 065
  63. GUANIDINE [Suspect]
     Active Substance: GUANIDINE
     Route: 065
  64. GUANIDINE [Suspect]
     Active Substance: GUANIDINE
     Route: 065
  65. GUANIDINE [Suspect]
     Active Substance: GUANIDINE
     Route: 065
  66. GUANIDINE [Suspect]
     Active Substance: GUANIDINE
     Route: 065
  67. GUANIDINE [Suspect]
     Active Substance: GUANIDINE
     Route: 065
  68. GUANIDINE [Suspect]
     Active Substance: GUANIDINE
     Route: 065
  69. GUANIDINE [Suspect]
     Active Substance: GUANIDINE
     Route: 065
  70. GUANIDINE [Suspect]
     Active Substance: GUANIDINE
     Route: 065
  71. IRBESARTAN [Suspect]
     Active Substance: IRBESARTAN
     Indication: Abdominal discomfort
     Dosage: 150 G, ONCE PER DAY
     Route: 065
     Dates: start: 20100912
  72. IRBESARTAN [Suspect]
     Active Substance: IRBESARTAN
     Indication: Depression
     Dosage: 150 G, ONCE PER DAY
     Route: 065
     Dates: start: 20100917
  73. IRBESARTAN [Suspect]
     Active Substance: IRBESARTAN
     Indication: Product used for unknown indication
     Dosage: 150 G, ONCE PER DAY
     Route: 065
     Dates: start: 20100917
  74. IRBESARTAN [Suspect]
     Active Substance: IRBESARTAN
     Dosage: 150 G, ONCE PER DAY
     Route: 065
     Dates: start: 20100917
  75. IRBESARTAN [Suspect]
     Active Substance: IRBESARTAN
     Dosage: 150 G, ONCE PER DAY
     Route: 065
  76. IRBESARTAN [Suspect]
     Active Substance: IRBESARTAN
     Dosage: 150 MG, ONCE PER DAY
     Route: 065
     Dates: start: 20100912
  77. IRBESARTAN [Suspect]
     Active Substance: IRBESARTAN
     Dosage: 150 MG, ONCE PER DAY 150 MG, QD (150 MG, QD (DAILY))
     Route: 065
     Dates: start: 20100917
  78. LACTOBACILLUS RHAMNOSUS [Suspect]
     Active Substance: LACTOBACILLUS RHAMNOSUS
     Indication: Depression
     Route: 065
  79. LACTOBACILLUS RHAMNOSUS [Suspect]
     Active Substance: LACTOBACILLUS RHAMNOSUS
     Route: 065
  80. LACTOBACILLUS RHAMNOSUS [Suspect]
     Active Substance: LACTOBACILLUS RHAMNOSUS
     Route: 065
  81. LACTOBACILLUS RHAMNOSUS [Suspect]
     Active Substance: LACTOBACILLUS RHAMNOSUS
     Indication: Abdominal discomfort
     Route: 065
  82. LACTOBACILLUS RHAMNOSUS [Suspect]
     Active Substance: LACTOBACILLUS RHAMNOSUS
     Route: 065
  83. METHOTREXATE SODIUM [Suspect]
     Active Substance: METHOTREXATE SODIUM
     Dosage: 17.5 MG, QW
     Route: 065
     Dates: start: 20100917
  84. METHOTREXATE SODIUM [Suspect]
     Active Substance: METHOTREXATE SODIUM
     Indication: Rheumatoid arthritis
     Dosage: 17.5 MG, PER WEEK (UNK UNK, WEEKLY (AT 17.5, WEEKLY))
     Route: 065
     Dates: start: 20100917
  85. METHOTREXATE SODIUM [Suspect]
     Active Substance: METHOTREXATE SODIUM
     Dosage: 18 MG, QW
     Route: 065
  86. METHOTREXATE SODIUM [Suspect]
     Active Substance: METHOTREXATE SODIUM
     Dosage: 18 MG, PER WEEK
     Route: 065
  87. METHOTREXATE SODIUM [Suspect]
     Active Substance: METHOTREXATE SODIUM
     Dosage: 18 MG, PER WEEK
     Route: 065
  88. METHOTREXATE SODIUM [Suspect]
     Active Substance: METHOTREXATE SODIUM
     Dosage: 18 MG, PER WEEK (18 MG, QW (UNK UNK, WEEKLY (AT 17.5, WEEKLY))
     Route: 065
     Dates: start: 20100917
  89. METHOTREXATE SODIUM [Suspect]
     Active Substance: METHOTREXATE SODIUM
     Dosage: UNK, QW
     Route: 065
  90. METHOTREXATE SODIUM [Suspect]
     Active Substance: METHOTREXATE SODIUM
     Route: 065
  91. METHOTREXATE SODIUM [Suspect]
     Active Substance: METHOTREXATE SODIUM
     Route: 065
  92. OMEPRAZOLE [Suspect]
     Active Substance: OMEPRAZOLE
     Indication: Product used for unknown indication
     Dosage: 20 MG, ONCE PER DAY
     Route: 065
     Dates: start: 20100917
  93. OMEPRAZOLE [Suspect]
     Active Substance: OMEPRAZOLE
     Dosage: 20 MG, ONCE PER DAY
     Route: 065
     Dates: start: 20200917
  94. OMEPRAZOLE [Suspect]
     Active Substance: OMEPRAZOLE
     Dosage: 20 MG, ONCE PER DAY
     Route: 065
  95. OMEPRAZOLE [Suspect]
     Active Substance: OMEPRAZOLE
     Dosage: 20 MG, PER HOUR (480 MILLIGRAM DAILY; 20 MG, 2X/DAY)
     Route: 065
  96. OMEPRAZOLE [Suspect]
     Active Substance: OMEPRAZOLE
     Route: 065
  97. OMEPRAZOLE [Suspect]
     Active Substance: OMEPRAZOLE
     Dosage: 20 MG, 2 TIMES PER DAY (20 MG, 2X/DAY)
     Route: 065
     Dates: start: 20100917
  98. OMEPRAZOLE [Suspect]
     Active Substance: OMEPRAZOLE
     Indication: Abdominal discomfort
     Dosage: 20 MG, 2 TIMES PER DAY (20 MG, BID  40 MG, QD 2X/DAY )
     Route: 065
     Dates: start: 20100917
  99. OMEPRAZOLE [Suspect]
     Active Substance: OMEPRAZOLE
     Dosage: 40 MG, ONCE PER DAY (20 MG, 2X/DAY FOR STOMACH;)
     Route: 065
     Dates: start: 20100917
  100. OMEPRAZOLE [Suspect]
     Active Substance: OMEPRAZOLE
     Dosage: 20 MG, 4 TIMES PER DAY
     Route: 065
     Dates: start: 20100917
  101. OMEPRAZOLE [Suspect]
     Active Substance: OMEPRAZOLE
     Dosage: 40 MG, 2 TIMES PER DAY (40 MG, QD (20 MG, 2X/DAY))
     Route: 065
     Dates: start: 20100917
  102. OMEPRAZOLE [Suspect]
     Active Substance: OMEPRAZOLE
     Dosage: 80 MG, ONCE PER DAY
     Route: 065
     Dates: start: 20200917
  103. OMEPRAZOLE [Suspect]
     Active Substance: OMEPRAZOLE
     Dosage: 80 MG, ONCE PER DAY
     Route: 065
  104. OMEPRAZOLE [Suspect]
     Active Substance: OMEPRAZOLE
     Dosage: 80 MG, ONCE PER DAY (20 MG, 4 TIMES PER DAY)
     Route: 065
     Dates: start: 20100917
  105. OMEPRAZOLE [Suspect]
     Active Substance: OMEPRAZOLE
     Dosage: 80 MG, QD
     Route: 065
  106. PROBIOTICS NOS [Suspect]
     Active Substance: PROBIOTICS NOS
     Indication: Abdominal discomfort
     Route: 065
  107. PROBIOTICS NOS [Suspect]
     Active Substance: PROBIOTICS NOS
     Route: 065
  108. PROBIOTICS NOS [Suspect]
     Active Substance: PROBIOTICS NOS
     Route: 065
  109. PROBIOTICS NOS [Suspect]
     Active Substance: PROBIOTICS NOS
     Indication: Depression
     Route: 065
  110. PROBIOTICS NOS [Suspect]
     Active Substance: PROBIOTICS NOS
     Route: 065
  111. PROBIOTICS NOS [Suspect]
     Active Substance: PROBIOTICS NOS
     Route: 065
  112. PROBIOTICS NOS [Suspect]
     Active Substance: PROBIOTICS NOS
     Route: 065
  113. PHYLLOCONTIN [Suspect]
     Active Substance: AMINOPHYLLINE
     Indication: Product used for unknown indication
     Dosage: 400 MG, ONCE PER DAY
     Route: 065
     Dates: start: 20100917
  114. PHYLLOCONTIN [Suspect]
     Active Substance: AMINOPHYLLINE
     Dosage: 400 MG, ONCE PER DAY
     Route: 065
     Dates: start: 20200917
  115. PHYLLOCONTIN [Suspect]
     Active Substance: AMINOPHYLLINE
     Dosage: 400 MG, ONCE PER DAY
     Route: 065
  116. PHYLLOCONTIN [Suspect]
     Active Substance: AMINOPHYLLINE
     Dosage: 400 MG, ONCE PER DAY
     Route: 065
  117. PHYLLOCONTIN [Suspect]
     Active Substance: AMINOPHYLLINE
     Dosage: 400 MG, QD
     Route: 065
  118. SIMETHICONE (DIMETHICONE) [Suspect]
     Active Substance: DIMETHICONE
     Indication: Product used for unknown indication
     Route: 065
  119. SULFAGUANIDINE [Suspect]
     Active Substance: SULFAGUANIDINE
     Dosage: 750 MG,  ONCE PER DAY
     Route: 065
  120. SULFAGUANIDINE [Suspect]
     Active Substance: SULFAGUANIDINE
     Dosage: 750 MG,  ONCE PER DAY
     Route: 065
  121. SULFAGUANIDINE [Suspect]
     Active Substance: SULFAGUANIDINE
     Dosage: 750 MG, ONCE PER DAY
     Route: 065
  122. SULFAGUANIDINE [Suspect]
     Active Substance: SULFAGUANIDINE
     Dosage: 750 MG, ONCE PER DAY
     Route: 065
  123. SULFAGUANIDINE [Suspect]
     Active Substance: SULFAGUANIDINE
     Indication: Abdominal discomfort
     Dosage: 750 MG, QD
     Route: 065
  124. SULFAGUANIDINE [Suspect]
     Active Substance: SULFAGUANIDINE
     Dosage: 750 MG, QD
     Route: 065
  125. THEOPHYLLINE [Suspect]
     Active Substance: THEOPHYLLINE
     Dosage: 750 MG, ONCE PER DAY
     Route: 065
  126. THEOPHYLLINE [Suspect]
     Active Substance: THEOPHYLLINE
     Dosage: 750 MG, ONCE PER DAY
     Route: 065
  127. THEOPHYLLINE [Suspect]
     Active Substance: THEOPHYLLINE
     Indication: Depression
     Dosage: 750 MG, QD
     Route: 065
  128. VENLAFAXINE [Suspect]
     Active Substance: VENLAFAXINE HYDROCHLORIDE
     Indication: Rheumatoid arthritis
     Dosage: 225 MG, ONCE PER DAY
     Route: 065
  129. VENLAFAXINE [Suspect]
     Active Substance: VENLAFAXINE HYDROCHLORIDE
     Dosage: 225 MG, ONCE PER DAY
     Route: 065
  130. VENLAFAXINE [Suspect]
     Active Substance: VENLAFAXINE HYDROCHLORIDE
     Dosage: 225 MG, ONCE PER DAY
     Route: 065
  131. VENLAFAXINE [Suspect]
     Active Substance: VENLAFAXINE HYDROCHLORIDE
     Dosage: 225 MG, ONCE PER DAY
     Route: 065
  132. VENLAFAXINE [Suspect]
     Active Substance: VENLAFAXINE HYDROCHLORIDE
     Indication: Depression
     Dosage: 225 MG, QD
     Route: 065
  133. VENLAFAXINE HYDROCHLORIDE [Suspect]
     Active Substance: VENLAFAXINE HYDROCHLORIDE
     Indication: Rheumatoid arthritis
     Dosage: 225 MG, ONCE PER DAY (PROLONGED RELEASE)
     Route: 065
  134. VENLAFAXINE HYDROCHLORIDE [Suspect]
     Active Substance: VENLAFAXINE HYDROCHLORIDE
     Dosage: 225 MG, ONCE PER DAY (PROLONGED RELEASE)
     Route: 065
  135. VENLAFAXINE HYDROCHLORIDE [Suspect]
     Active Substance: VENLAFAXINE HYDROCHLORIDE
     Indication: Depression
     Dosage: 225 MG, QD
     Route: 065
  136. VENLAFAXINE HYDROCHLORIDE [Suspect]
     Active Substance: VENLAFAXINE HYDROCHLORIDE
     Route: 065
  137. VENLAFAXINE HYDROCHLORIDE [Suspect]
     Active Substance: VENLAFAXINE HYDROCHLORIDE
     Route: 065
  138. VENLAFAXINE HYDROCHLORIDE [Suspect]
     Active Substance: VENLAFAXINE HYDROCHLORIDE
     Route: 065
  139. VENLAFAXINE HYDROCHLORIDE [Suspect]
     Active Substance: VENLAFAXINE HYDROCHLORIDE
     Route: 065
  140. VENLAFAXINE HYDROCHLORIDE [Suspect]
     Active Substance: VENLAFAXINE HYDROCHLORIDE
     Dosage: 225 MG, ONCE PER DAY
     Route: 065
  141. VENLAFAXINE HYDROCHLORIDE [Suspect]
     Active Substance: VENLAFAXINE HYDROCHLORIDE
     Dosage: 225 MG, ONCE PER DAY
     Route: 065
  142. VENLAFAXINE HYDROCHLORIDE [Suspect]
     Active Substance: VENLAFAXINE HYDROCHLORIDE
     Dosage: 225 MG, ONCE PER DAY
     Route: 065
  143. VENLAFAXINE HYDROCHLORIDE [Suspect]
     Active Substance: VENLAFAXINE HYDROCHLORIDE
     Dosage: 225 MG, ONCE PER DAY
     Route: 065
  144. VENLAFAXINE HYDROCHLORIDE [Suspect]
     Active Substance: VENLAFAXINE HYDROCHLORIDE
     Dosage: 225 MG, ONCE PER DAY, PROLONGED RELEASE,225 MG, DAILY
     Route: 065
  145. VENLAFAXINE HYDROCHLORIDE [Suspect]
     Active Substance: VENLAFAXINE HYDROCHLORIDE
     Dosage: 225 MG, ONCE PER DAY, PROLONGED RELEASE,225 MG, DAILY
     Route: 065
  146. VENLAFAXINE HYDROCHLORIDE [Suspect]
     Active Substance: VENLAFAXINE HYDROCHLORIDE
     Indication: Depression
     Dosage: 225 MG, QD (XL, PROLONGED RELEASE)
     Route: 065
  147. VENLAFAXINE HYDROCHLORIDE [Suspect]
     Active Substance: VENLAFAXINE HYDROCHLORIDE
     Indication: Rheumatoid arthritis
     Dosage: 225 MG, QD (XL, PROLONGED RELEASE)
     Route: 065
  148. VENLAFAXINE HYDROCHLORIDE [Suspect]
     Active Substance: VENLAFAXINE HYDROCHLORIDE
     Dosage: 225 MG, QD (XL, PROLONGED RELEASE)
     Route: 065
  149. VENLAFAXINE HYDROCHLORIDE [Suspect]
     Active Substance: VENLAFAXINE HYDROCHLORIDE
     Route: 065
  150. VENLAFAXINE HYDROCHLORIDE [Suspect]
     Active Substance: VENLAFAXINE HYDROCHLORIDE
     Route: 065
  151. ZINC [Suspect]
     Active Substance: ZINC
     Indication: Product used for unknown indication
     Dosage: 750 MG (DIETHYLDITHIOCARBAMATE)
     Route: 065
  152. ZINC [Suspect]
     Active Substance: ZINC
     Dosage: 750 MG,  ONCE PER DAY, (DIETHYLDITHIOCARBAMATE)
     Route: 065
  153. ZINC [Suspect]
     Active Substance: ZINC
     Indication: Depression
     Dosage: 750 MG, QD ((DIETHYLDITHIOCARBAMATE))
     Route: 065
  154. ZINC [Suspect]
     Active Substance: ZINC
     Route: 065
  155. ZINC [Suspect]
     Active Substance: ZINC
     Route: 065
  156. ZINC [Suspect]
     Active Substance: ZINC
     Indication: Abdominal discomfort
     Route: 065
  157. ZINC [Suspect]
     Active Substance: ZINC
     Route: 065
  158. ZINC [Suspect]
     Active Substance: ZINC
     Route: 065
  159. ZINC [Suspect]
     Active Substance: ZINC
     Route: 065
  160. ZINC [Suspect]
     Active Substance: ZINC
     Route: 065
  161. ZINC OXIDE [Suspect]
     Active Substance: ZINC OXIDE
     Dosage: 750 MG, QD (DIETHYLDITHIOCARBAMATE)
     Route: 065
  162. ZINC OXIDE [Suspect]
     Active Substance: ZINC OXIDE
     Indication: Depression
     Dosage: 750 MILLIGRAM, QD
     Route: 065
  163. ZINC OXIDE [Suspect]
     Active Substance: ZINC OXIDE
     Indication: Abdominal discomfort
     Dosage: 750 MILLIGRAM, QD(750 MG, QD)
     Route: 065
  164. ZINC OXIDE [Suspect]
     Active Substance: ZINC OXIDE
     Route: 065
  165. ZINC OXIDE [Suspect]
     Active Substance: ZINC OXIDE
     Route: 065
  166. ZINC OXIDE [Suspect]
     Active Substance: ZINC OXIDE
     Route: 065
  167. ZINC OXIDE [Suspect]
     Active Substance: ZINC OXIDE
     Route: 065
  168. BENDROFLUMETHIAZIDE [Concomitant]
     Active Substance: BENDROFLUMETHIAZIDE
     Route: 065
  169. BENDROFLUMETHIAZIDE [Concomitant]
     Active Substance: BENDROFLUMETHIAZIDE
     Route: 065
  170. BENDROFLUMETHIAZIDE [Concomitant]
     Active Substance: BENDROFLUMETHIAZIDE
     Route: 065
  171. BENDROFLUMETHIAZIDE [Concomitant]
     Active Substance: BENDROFLUMETHIAZIDE
     Route: 065
  172. BENDROFLUMETHIAZIDE [Concomitant]
     Active Substance: BENDROFLUMETHIAZIDE
     Route: 065
  173. BENDROFLUMETHIAZIDE [Concomitant]
     Active Substance: BENDROFLUMETHIAZIDE
     Route: 065
  174. BENDROFLUMETHIAZIDE [Concomitant]
     Active Substance: BENDROFLUMETHIAZIDE
     Route: 065
  175. BENDROFLUMETHIAZIDE [Concomitant]
     Active Substance: BENDROFLUMETHIAZIDE
     Route: 065
  176. BENDROFLUMETHIAZIDE [Concomitant]
     Active Substance: BENDROFLUMETHIAZIDE
     Route: 065
  177. BENDROFLUMETHIAZIDE [Concomitant]
     Active Substance: BENDROFLUMETHIAZIDE
     Indication: Pituitary tumour
     Route: 065
  178. BENDROFLUMETHIAZIDE [Concomitant]
     Active Substance: BENDROFLUMETHIAZIDE
     Route: 065
  179. BENDROFLUMETHIAZIDE [Concomitant]
     Active Substance: BENDROFLUMETHIAZIDE
     Indication: Depression
     Route: 065
  180. BENDROFLUMETHIAZIDE [Concomitant]
     Active Substance: BENDROFLUMETHIAZIDE
     Indication: Product used for unknown indication
     Route: 065
  181. BENDROFLUMETHIAZIDE [Concomitant]
     Active Substance: BENDROFLUMETHIAZIDE
     Route: 065
  182. BENDROFLUMETHIAZIDE [Concomitant]
     Active Substance: BENDROFLUMETHIAZIDE
     Route: 065
  183. BENDROFLUMETHIAZIDE [Concomitant]
     Active Substance: BENDROFLUMETHIAZIDE
     Route: 065
  184. BENDROFLUMETHIAZIDE [Concomitant]
     Active Substance: BENDROFLUMETHIAZIDE
     Route: 065
  185. CABERGOLINE [Concomitant]
     Active Substance: CABERGOLINE
     Indication: Empty sella syndrome
     Route: 065
  186. CABERGOLINE [Concomitant]
     Active Substance: CABERGOLINE
     Indication: Pituitary tumour
     Route: 065
  187. CABERGOLINE [Concomitant]
     Active Substance: CABERGOLINE
     Indication: Pituitary tumour
     Route: 065
  188. CABERGOLINE [Concomitant]
     Active Substance: CABERGOLINE
     Indication: Product used for unknown indication
     Route: 065
  189. CABERGOLINE [Concomitant]
     Active Substance: CABERGOLINE
     Route: 065
  190. CABERGOLINE [Concomitant]
     Active Substance: CABERGOLINE
     Route: 065
  191. CABERGOLINE [Concomitant]
     Active Substance: CABERGOLINE
     Route: 065
  192. CABERGOLINE [Concomitant]
     Active Substance: CABERGOLINE
     Route: 065
  193. CABERGOLINE [Concomitant]
     Active Substance: CABERGOLINE
     Route: 065
  194. CABERGOLINE [Concomitant]
     Active Substance: CABERGOLINE
     Route: 065
  195. CABERGOLINE [Concomitant]
     Active Substance: CABERGOLINE
     Route: 065
  196. CABERGOLINE [Concomitant]
     Active Substance: CABERGOLINE
     Route: 065
  197. CABERGOLINE [Concomitant]
     Active Substance: CABERGOLINE
     Route: 065
  198. CABERGOLINE [Concomitant]
     Active Substance: CABERGOLINE
     Route: 065
  199. CABERGOLINE [Concomitant]
     Active Substance: CABERGOLINE
     Route: 065
  200. CABERGOLINE [Concomitant]
     Active Substance: CABERGOLINE
     Route: 065
  201. CABERGOLINE [Concomitant]
     Active Substance: CABERGOLINE
     Route: 065
  202. CABERGOLINE [Concomitant]
     Active Substance: CABERGOLINE
     Route: 065
  203. ACTIVATED CHARCOAL [Concomitant]
     Active Substance: ACTIVATED CHARCOAL
     Indication: Product used for unknown indication
     Route: 065
  204. ACTIVATED CHARCOAL [Concomitant]
     Active Substance: ACTIVATED CHARCOAL
     Route: 065
  205. ACTIVATED CHARCOAL [Concomitant]
     Active Substance: ACTIVATED CHARCOAL
     Route: 065
  206. ACTIVATED CHARCOAL [Concomitant]
     Active Substance: ACTIVATED CHARCOAL
     Route: 065
  207. ACTIVATED CHARCOAL [Concomitant]
     Active Substance: ACTIVATED CHARCOAL
     Route: 065
  208. ACTIVATED CHARCOAL [Concomitant]
     Active Substance: ACTIVATED CHARCOAL
     Route: 065
  209. CETIRIZINE [Concomitant]
     Active Substance: CETIRIZINE HYDROCHLORIDE
     Indication: Product used for unknown indication
     Route: 065
  210. CETIRIZINE [Concomitant]
     Active Substance: CETIRIZINE HYDROCHLORIDE
     Route: 065
  211. CETIRIZINE [Concomitant]
     Active Substance: CETIRIZINE HYDROCHLORIDE
     Route: 065
  212. CETIRIZINE [Concomitant]
     Active Substance: CETIRIZINE HYDROCHLORIDE
     Route: 065
  213. CETIRIZINE [Concomitant]
     Active Substance: CETIRIZINE HYDROCHLORIDE
     Route: 065
  214. CETIRIZINE [Concomitant]
     Active Substance: CETIRIZINE HYDROCHLORIDE
     Route: 065
  215. CETIRIZINE [Concomitant]
     Active Substance: CETIRIZINE HYDROCHLORIDE
     Route: 065
  216. CETIRIZINE [Concomitant]
     Active Substance: CETIRIZINE HYDROCHLORIDE
     Indication: Abdominal discomfort
     Route: 065
  217. ACTIVATED CHARCOAL [Concomitant]
     Active Substance: ACTIVATED CHARCOAL
     Dosage: 750 MG,  UNK
     Route: 065
  218. ACTIVATED CHARCOAL [Concomitant]
     Active Substance: ACTIVATED CHARCOAL
     Dosage: 750 MG, 1X/DAY
     Route: 065
  219. ACTIVATED CHARCOAL [Concomitant]
     Active Substance: ACTIVATED CHARCOAL
     Indication: Product used for unknown indication
     Route: 065
  220. ACTIVATED CHARCOAL [Concomitant]
     Active Substance: ACTIVATED CHARCOAL
     Route: 065
  221. ACTIVATED CHARCOAL [Concomitant]
     Active Substance: ACTIVATED CHARCOAL
     Route: 065
  222. DOXYCYCLINE [Concomitant]
     Active Substance: DOXYCYCLINE
     Indication: Pulmonary pain
     Route: 065
  223. DOXYCYCLINE [Concomitant]
     Active Substance: DOXYCYCLINE
     Route: 065
  224. DOXYCYCLINE [Concomitant]
     Active Substance: DOXYCYCLINE
     Route: 065
  225. EZETIMIBE [Concomitant]
     Active Substance: EZETIMIBE
     Route: 065
     Dates: start: 20100917
  226. EZETIMIBE [Concomitant]
     Active Substance: EZETIMIBE
     Route: 065
     Dates: start: 20210917
  227. EZETIMIBE [Concomitant]
     Active Substance: EZETIMIBE
     Indication: Product used for unknown indication
     Route: 065
  228. EZETIMIBE [Concomitant]
     Active Substance: EZETIMIBE
     Route: 065
  229. EZETIMIBE [Concomitant]
     Active Substance: EZETIMIBE
     Route: 065
  230. EZETIMIBE [Concomitant]
     Active Substance: EZETIMIBE
     Route: 065
  231. FOLIC ACID [Concomitant]
     Active Substance: FOLIC ACID
     Indication: Product used for unknown indication
     Route: 065
  232. FOLIC ACID [Concomitant]
     Active Substance: FOLIC ACID
     Route: 065
  233. FOLIC ACID [Concomitant]
     Active Substance: FOLIC ACID
     Route: 065
  234. FOLIC ACID [Concomitant]
     Active Substance: FOLIC ACID
     Route: 065
  235. FOLIC ACID [Concomitant]
     Active Substance: FOLIC ACID
     Route: 065
  236. FOLIC ACID [Concomitant]
     Active Substance: FOLIC ACID
     Route: 065
  237. FOLIC ACID [Concomitant]
     Active Substance: FOLIC ACID
     Route: 065
  238. LEVOTHYROXINE [Concomitant]
     Active Substance: LEVOTHYROXINE
     Indication: Abdominal discomfort
     Route: 016
  239. LEVOTHYROXINE [Concomitant]
     Active Substance: LEVOTHYROXINE
     Route: 016
  240. LEVOTHYROXINE [Concomitant]
     Active Substance: LEVOTHYROXINE
     Route: 016
  241. LEVOTHYROXINE [Concomitant]
     Active Substance: LEVOTHYROXINE
     Indication: Product used for unknown indication
     Route: 065
  242. LEVOTHYROXINE [Concomitant]
     Active Substance: LEVOTHYROXINE
     Route: 016
  243. LEVOTHYROXINE [Concomitant]
     Active Substance: LEVOTHYROXINE
     Route: 016
  244. LEVOTHYROXINE [Concomitant]
     Active Substance: LEVOTHYROXINE
     Route: 065
  245. LEVOTHYROXINE [Concomitant]
     Active Substance: LEVOTHYROXINE
     Route: 065
  246. ORUVAIL [Concomitant]
     Active Substance: KETOPROFEN
     Indication: Empty sella syndrome
     Route: 065
  247. ORUVAIL [Concomitant]
     Active Substance: KETOPROFEN
     Indication: Product used for unknown indication
     Route: 065
  248. ORUVAIL [Concomitant]
     Active Substance: KETOPROFEN
     Route: 065
  249. ORUVAIL [Concomitant]
     Active Substance: KETOPROFEN
     Route: 065
  250. ORUVAIL [Concomitant]
     Active Substance: KETOPROFEN
     Route: 065
  251. ORUVAIL [Concomitant]
     Active Substance: KETOPROFEN
     Route: 065
  252. ORUVAIL [Concomitant]
     Active Substance: KETOPROFEN
     Route: 065
  253. ORUVAIL [Concomitant]
     Active Substance: KETOPROFEN
     Route: 065
  254. ORUVAIL [Concomitant]
     Active Substance: KETOPROFEN
     Route: 065
  255. ORUVAIL [Concomitant]
     Active Substance: KETOPROFEN
     Route: 065
  256. ORUVAIL [Concomitant]
     Active Substance: KETOPROFEN
     Route: 065
  257. ORUVAIL [Concomitant]
     Active Substance: KETOPROFEN
     Route: 065
  258. ORUVAIL [Concomitant]
     Active Substance: KETOPROFEN
     Route: 065
  259. ORUVAIL [Concomitant]
     Active Substance: KETOPROFEN
     Route: 065
  260. ORUVAIL [Concomitant]
     Active Substance: KETOPROFEN
     Route: 065
  261. ORUVAIL [Concomitant]
     Active Substance: KETOPROFEN
     Route: 065

REACTIONS (13)
  - Lower respiratory tract infection [Not Recovered/Not Resolved]
  - Pulmonary pain [Unknown]
  - Abdominal discomfort [Unknown]
  - Rash [Not Recovered/Not Resolved]
  - Knee arthroplasty [Unknown]
  - Amyloid arthropathy [Unknown]
  - Arthropathy [Unknown]
  - Obesity [Unknown]
  - Drug abuse [Unknown]
  - Product dose omission issue [Unknown]
  - Intentional product misuse [Unknown]
  - Off label use [Unknown]
  - Overdose [Unknown]

NARRATIVE: CASE EVENT DATE: 20201001
